FAERS Safety Report 5370161-9 (Version None)
Quarter: 2007Q2

REPORT INFORMATION
  Report Type: 
  Country: None (occurrence: None)
  Receive Date: 20070626
  Receipt Date: 20070618
  Transmission Date: 20071010
  Serious: Yes (Other)
  Sender: FDA-Public Use
  Company Number: US-ELI_LILLY_AND_COMPANY-US200706004072

PATIENT
  Age: 69 Year
  Sex: Female

DRUGS (12)
  1. BYETTA [Suspect]
     Dosage: 10 UG, 2/D
     Route: 058
     Dates: start: 20061101, end: 20061201
  2. BYETTA [Suspect]
     Dosage: 5 UG, 2/D
     Route: 058
     Dates: start: 20061201, end: 20070101
  3. BYETTA [Suspect]
     Dosage: 10 UG, 2/D
     Route: 058
     Dates: start: 20070101
  4. HYDRALAZINE HCL [Concomitant]
     Indication: HYPERTENSION
     Dosage: UNK, UNKNOWN
     Dates: end: 20060101
  5. HYDRALAZINE HCL [Concomitant]
     Dosage: 200 MG, 2/D
     Route: 048
     Dates: start: 20060101
  6. LANTUS [Concomitant]
     Indication: DIABETES MELLITUS
     Dosage: 30 U, 2/D
     Route: 058
     Dates: end: 20070101
  7. LANTUS [Concomitant]
     Dosage: 25 U, 2/D
     Route: 058
     Dates: start: 20070101
  8. LEXAPRO [Concomitant]
  9. NASONEX [Concomitant]
     Route: 045
  10. MULTI-VITAMIN [Concomitant]
  11. SIMVASTATIN [Concomitant]
  12. ASPIRIN [Concomitant]

REACTIONS (6)
  - BLOOD GLUCOSE DECREASED [None]
  - DECREASED APPETITE [None]
  - FALL [None]
  - HYPERHIDROSIS [None]
  - LOSS OF CONSCIOUSNESS [None]
  - WEIGHT DECREASED [None]
